FAERS Safety Report 16909827 (Version 1)
Quarter: 2019Q4

REPORT INFORMATION
  Report Type: Spontaneous
  Country: JP (occurrence: JP)
  Receive Date: 20191011
  Receipt Date: 20191011
  Transmission Date: 20200122
  Serious: Yes (Hospitalization)
  Sender: FDA-Public Use
  Company Number: JP-ANIPHARMA-2019-JP-000196

PATIENT
  Age: 73 Year
  Sex: Male

DRUGS (5)
  1. FEBURIC [Suspect]
     Active Substance: FEBUXOSTAT
     Dosage: 10 MG QD / 10 MG QD
     Route: 048
     Dates: start: 20160407
  2. CANDESARTAN CILEXETIL. [Suspect]
     Active Substance: CANDESARTAN CILEXETIL
     Indication: PRODUCT USED FOR UNKNOWN INDICATION
     Dosage: 2 MG DAILY / 2 MG DAILY / 4 MG DAILY
     Route: 048
  3. SAMSCA [Suspect]
     Active Substance: TOLVAPTAN
     Dosage: 15 MG DAILY
     Route: 048
     Dates: start: 20150610, end: 20151028
  4. TAMSULOSIN HYDROCHLORIDE. [Suspect]
     Active Substance: TAMSULOSIN HYDROCHLORIDE
     Dosage: 0.2 MG QD / 0.2 MG QD
     Route: 048
     Dates: start: 20160203
  5. AVOLVE [Suspect]
     Active Substance: DUTASTERIDE
     Dosage: 0.5 MG QD / 0.5 MG QD
     Route: 048
     Dates: start: 20160203

REACTIONS (3)
  - Aspartate aminotransferase increased [Recovered/Resolved]
  - Gamma-glutamyltransferase increased [Recovered/Resolved]
  - Alanine aminotransferase increased [Recovered/Resolved]

NARRATIVE: CASE EVENT DATE: 20151028
